FAERS Safety Report 9688881 (Version 2)
Quarter: 2014Q1

REPORT INFORMATION
  Report Type: Spontaneous
  Country: US (occurrence: None)
  Receive Date: 20131113
  Receipt Date: 20140129
  Transmission Date: 20141002
  Serious: Yes (Death, Hospitalization, Other)
  Sender: FDA-Public Use
  Company Number: 2013SGN00697

PATIENT
  Age: 34 Year
  Sex: Male
  Weight: 73.6 kg

DRUGS (1)
  1. BRENTUXIMAB VEDOTIN [Suspect]
     Indication: DIFFUSE LARGE B-CELL LYMPHOMA
     Dosage: 1.8 MG/KG, Q21D, INTRAVENOUS
     Route: 042
     Dates: start: 20130819, end: 20130930

REACTIONS (8)
  - Hypotension [None]
  - Weight decreased [None]
  - Platelet count decreased [None]
  - Cough [None]
  - Tachycardia [None]
  - Malignant neoplasm progression [None]
  - Diffuse large B-cell lymphoma [None]
  - Pericardial effusion [None]
